FAERS Safety Report 5773885-4 (Version None)
Quarter: 2008Q2

REPORT INFORMATION
  Report Type: 
  Country: None (occurrence: None)
  Receive Date: 20080616
  Receipt Date: 20080612
  Transmission Date: 20081010
  Serious: Yes (Disabling)
  Sender: FDA-Public Use
  Company Number: A0732671A

PATIENT
  Age: 59 Year
  Sex: Female

DRUGS (2)
  1. COREG CR [Suspect]
     Indication: HYPERTENSION
     Dosage: 40MG PER DAY
     Route: 048
     Dates: start: 20080415, end: 20080425
  2. HYDROCHLOROTHIAZIDE [Concomitant]

REACTIONS (6)
  - ALOPECIA [None]
  - DIZZINESS [None]
  - DYSGEUSIA [None]
  - NAUSEA [None]
  - OEDEMA PERIPHERAL [None]
  - SOMNOLENCE [None]
